FAERS Safety Report 7344822-6 (Version None)
Quarter: 2011Q1

REPORT INFORMATION
  Report Type: 
  Country: None (occurrence: None)
  Receive Date: 20110228
  Receipt Date: 20110207
  Transmission Date: 20110831
  Serious: Yes (Death)
  Sender: FDA-Public Use
  Company Number: 2135225-2011-00011

PATIENT
  Age: 56 Year
  Sex: Male

DRUGS (2)
  1. AETHOXYSKLEROL [Suspect]
     Indication: VARICES OESOPHAGEAL
     Dosage: SUBMUCOUS
     Dates: start: 19940812
  2. HISTOACRYL [Concomitant]

REACTIONS (4)
  - POST PROCEDURAL COMPLICATION [None]
  - GASTROINTESTINAL NECROSIS [None]
  - OESOPHAGEAL HAEMORRHAGE [None]
  - SHOCK HAEMORRHAGIC [None]
